FAERS Safety Report 9368864 (Version 1)
Quarter: 2013Q2

REPORT INFORMATION
  Report Type: Report from Study
  Country: GB (occurrence: GB)
  Receive Date: 20130626
  Receipt Date: 20130626
  Transmission Date: 20140414
  Serious: Yes (Death, Other)
  Sender: FDA-Public Use
  Company Number: GB-ROCHE-1240165

PATIENT
  Sex: 0

DRUGS (1)
  1. BEVACIZUMAB [Suspect]
     Indication: COLORECTAL CANCER METASTATIC
     Route: 065

REACTIONS (8)
  - Death [Fatal]
  - Haemorrhage [Unknown]
  - Gastrointestinal perforation [Unknown]
  - Embolism venous [Unknown]
  - Hypertension [Unknown]
  - Proteinuria [Unknown]
  - Pulmonary embolism [Unknown]
  - Deep vein thrombosis [Unknown]
